FAERS Safety Report 7493275-6 (Version None)
Quarter: 2011Q2

REPORT INFORMATION
  Report Type: 
  Country: None (occurrence: None)
  Receive Date: 20110520
  Receipt Date: 20110517
  Transmission Date: 20111010
  Serious: Yes (Hospitalization)
  Sender: FDA-Public Use
  Company Number: FR-SANOFI-AVENTIS-2010SA055833

PATIENT
  Age: 84 Year
  Sex: Female

DRUGS (10)
  1. PREVISCAN [Suspect]
     Route: 048
     Dates: start: 20100101, end: 20100901
  2. ESIDRIX [Concomitant]
     Route: 048
  3. BUMETANIDE [Suspect]
     Route: 048
     Dates: start: 20100101, end: 20100901
  4. EUPRESSYL [Concomitant]
     Route: 048
  5. DIFFU K [Concomitant]
     Route: 048
  6. LASIX [Suspect]
     Route: 048
     Dates: start: 20100101, end: 20100901
  7. HYPERIUM [Concomitant]
     Route: 048
  8. RIFAMYCIN SODIUM [Concomitant]
     Route: 047
  9. AMLODIPINE BESYLATE [Concomitant]
     Route: 048
  10. RAMIPRIL [Concomitant]
     Route: 048

REACTIONS (1)
  - VASCULITIS NECROTISING [None]
